FAERS Safety Report 7118838-9 (Version None)
Quarter: 2010Q4

REPORT INFORMATION
  Report Type: 
  Country: None (occurrence: None)
  Receive Date: 20101123
  Receipt Date: 20101110
  Transmission Date: 20110411
  Serious: Yes (Other)
  Sender: FDA-Public Use
  Company Number: GB-PFIZER INC-GBWYE100931OCT05

PATIENT
  Age: 6 Year
  Sex: Male

DRUGS (3)
  1. IBUPROFEN [Suspect]
     Indication: PYREXIA
     Dosage: 100MG 1 TIMES PER 6 HR
     Route: 048
  2. ACETAMINOPHEN [Suspect]
     Indication: PYREXIA
     Route: 048
  3. ANTIBIOTICS FOR TOPICAL USE [Concomitant]

REACTIONS (7)
  - COAGULOPATHY [None]
  - CONDITION AGGRAVATED [None]
  - HAEMORRHAGIC DIATHESIS [None]
  - NEPHROPATHY TOXIC [None]
  - PLEURAL EFFUSION [None]
  - RENAL TUBULAR NECROSIS [None]
  - TUBULOINTERSTITIAL NEPHRITIS [None]
